FAERS Safety Report 21638017 (Version 1)
Quarter: 2022Q4

REPORT INFORMATION
  Report Type: Spontaneous
  Country: US (occurrence: US)
  Receive Date: 20221124
  Receipt Date: 20221124
  Transmission Date: 20230113
  Serious: No
  Sender: FDA-Public Use
  Company Number: US-drreddys-SPO/USA/22/0157061

PATIENT
  Age: 25 Year

DRUGS (2)
  1. ACCUTANE [Suspect]
     Active Substance: ISOTRETINOIN
     Indication: Acne
     Dosage: RMA ISSUE DATE: 10 MAY 2022 04:27:13 PM, 13 JULY 2022 07:33:44 PM, 11 AUGUST 2022 07:57:00 PM, 14 SE
  2. ACCUTANE [Suspect]
     Active Substance: ISOTRETINOIN
     Dosage: RMA ISSUE DATE: 13 JUNE 2022 07:58:38 PM

REACTIONS (1)
  - Visual field defect [Unknown]
